FAERS Safety Report 8808391 (Version 2)
Quarter: 2012Q4

REPORT INFORMATION
  Report Type: 
  Country: US (occurrence: US)
  Receive Date: 20120926
  Receipt Date: 20121025
  Transmission Date: 20130627
  Serious: Yes (Hospitalization)
  Sender: FDA-Public Use
  Company Number: US-PFIZER INC-2012233680

PATIENT
  Age: 52 Year
  Sex: Male

DRUGS (1)
  1. SUTENT [Suspect]
     Indication: RENAL CANCER
     Dosage: 50 mg, UNK
     Dates: start: 20120524

REACTIONS (4)
  - Diarrhoea [Unknown]
  - Dehydration [Unknown]
  - Disease progression [Unknown]
  - Renal cancer [Unknown]
